FAERS Safety Report 4307862-7 (Version None)
Quarter: 2004Q1

REPORT INFORMATION
  Report Type: 
  Country: None (occurrence: None)
  Receive Date: 20040226
  Receipt Date: 20030508
  Transmission Date: 20041129
  Serious: Yes (Hospitalization)
  Sender: FDA-Public Use
  Company Number: 2003159103US

PATIENT
  Sex: Female

DRUGS (2)
  1. CELEBREX [Suspect]
     Dosage: 200 MG, QD, ORAL; 400 MG, QD, ORAL
     Route: 048
     Dates: start: 20010101
  2. CELEBREX [Suspect]
     Dosage: 200 MG, QD, ORAL; 400 MG, QD, ORAL
     Route: 048
     Dates: start: 20020101

REACTIONS (1)
  - RENAL FAILURE [None]
